FAERS Safety Report 23349026 (Version 1)
Quarter: 2023Q4

REPORT INFORMATION
  Report Type: Spontaneous
  Country: GB (occurrence: GB)
  Receive Date: 20231229
  Receipt Date: 20231229
  Transmission Date: 20240110
  Serious: Yes (Other)
  Sender: FDA-Public Use
  Company Number: None

PATIENT
  Age: 51 Year
  Weight: 97 kg

DRUGS (3)
  1. PRAMIPEXOLE [Suspect]
     Active Substance: PRAMIPEXOLE
     Indication: Restless legs syndrome
     Dates: start: 20140707
  2. COCAINE [Suspect]
     Active Substance: COCAINE
     Indication: Product used for unknown indication
  3. COCAINE WITH ADRENALINE [Concomitant]
     Indication: Adverse drug reaction

REACTIONS (3)
  - Compulsive shopping [Not Recovered/Not Resolved]
  - Drug abuse [Unknown]
  - Restless legs syndrome [Unknown]
